FAERS Safety Report 5736186-6 (Version None)
Quarter: 2008Q2

REPORT INFORMATION
  Report Type: 
  Country: None (occurrence: None)
  Receive Date: 20080509
  Receipt Date: 20080509
  Transmission Date: 20081010
  Serious: Yes (Hospitalization)
  Sender: FDA-Public Use
  Company Number: None

PATIENT
  Sex: Female
  Weight: 120.8 kg

DRUGS (2)
  1. TEMOZOLOMIDE [Suspect]
     Dosage: 1920 MG
  2. DECADRON [Concomitant]

REACTIONS (3)
  - DYSPNOEA [None]
  - JOINT SWELLING [None]
  - PULMONARY EMBOLISM [None]
